FAERS Safety Report 5645560-8 (Version None)
Quarter: 2008Q1

REPORT INFORMATION
  Report Type: 
  Country: None (occurrence: None)
  Receive Date: 20080229
  Receipt Date: 20080219
  Transmission Date: 20080703
  Serious: Yes (Other)
  Sender: FDA-Public Use
  Company Number: US-BAYER-200814302NA

PATIENT
  Age: 28 Year
  Sex: Female
  Weight: 77 kg

DRUGS (4)
  1. MAGNEVIST [Suspect]
     Indication: EPILEPSY
     Route: 042
     Dates: start: 20080218, end: 20080218
  2. LAMICTAL [Concomitant]
  3. DILANTIN [Concomitant]
  4. PROZAC [Concomitant]

REACTIONS (3)
  - MIGRAINE [None]
  - NAUSEA [None]
  - SWOLLEN TONGUE [None]
